FAERS Safety Report 15621463 (Version 1)
Quarter: 2018Q4

REPORT INFORMATION
  Report Type: Spontaneous
  Country: JP (occurrence: JP)
  Receive Date: 20181115
  Receipt Date: 20181115
  Transmission Date: 20190205
  Serious: Yes (Other)
  Sender: FDA-Public Use
  Company Number: JP-GLAXOSMITHKLINE-JP2018JPN204385

PATIENT
  Age: 53 Year
  Sex: Male

DRUGS (10)
  1. AMOXAN [Concomitant]
     Active Substance: AMOXAPINE
     Dosage: UNK
  2. OLOPATADINE. [Concomitant]
     Active Substance: OLOPATADINE
     Dosage: UNK
     Dates: start: 201603
  3. LENDORMIN [Concomitant]
     Active Substance: BROTIZOLAM
     Indication: INSOMNIA
     Dosage: UNK
  4. LAMICTAL [Suspect]
     Active Substance: LAMOTRIGINE
     Dosage: 100 MG, QD
     Route: 048
     Dates: start: 20160425, end: 20160906
  5. LITHIUM CARBONATE. [Concomitant]
     Active Substance: LITHIUM CARBONATE
     Dosage: UNK
  6. LAMICTAL [Suspect]
     Active Substance: LAMOTRIGINE
     Indication: BIPOLAR DISORDER
     Dosage: UNK
     Route: 048
     Dates: start: 201603
  7. LAMICTAL [Suspect]
     Active Substance: LAMOTRIGINE
     Dosage: 50 MG, 1D
     Route: 048
     Dates: start: 20160327
  8. SERTRALINE HYDROCHLORIDE. [Concomitant]
     Active Substance: SERTRALINE HYDROCHLORIDE
     Dosage: UNK
  9. LAMICTAL [Suspect]
     Active Substance: LAMOTRIGINE
     Dosage: UNK
     Route: 048
  10. CARBAMAZEPINE. [Concomitant]
     Active Substance: CARBAMAZEPINE
     Dosage: UNK

REACTIONS (6)
  - Skin exfoliation [Unknown]
  - Rash [Unknown]
  - Affective disorder [Unknown]
  - Pyrexia [Recovered/Resolved]
  - Stevens-Johnson syndrome [Recovered/Resolved]
  - Purulence [Recovered/Resolved]

NARRATIVE: CASE EVENT DATE: 20160815
